FAERS Safety Report 9705470 (Version 1)
Quarter: 2013Q4

REPORT INFORMATION
  Report Type: Spontaneous
  Country: GB (occurrence: GB)
  Receive Date: 20131122
  Receipt Date: 20131122
  Transmission Date: 20140711
  Serious: Yes (Hospitalization)
  Sender: FDA-Public Use
  Company Number: GB-WATSON-2013-21412

PATIENT
  Age: 65 Year
  Sex: Female
  Weight: 102 kg

DRUGS (7)
  1. DOCETAXEL (UNKNOWN) [Suspect]
     Indication: BREAST CANCER
     Dosage: 106 MG, 1/ THREE WEEKS
     Route: 042
  2. CARBOPLATIN (UNKNOWN) [Suspect]
     Indication: BREAST CANCER
     Dosage: 810 MG, 1/ THREE WEEKS
     Route: 042
  3. HERCEPTIN [Suspect]
     Indication: BREAST CANCER
     Dosage: 810 MG, 1/ THREE WEEKS
     Route: 042
     Dates: start: 20120601
  4. ASPIRIN [Concomitant]
     Indication: PRODUCT USED FOR UNKNOWN INDICATION
     Dosage: UNK
     Route: 048
     Dates: start: 2002
  5. LEVOTHYROXINE [Concomitant]
     Indication: PRODUCT USED FOR UNKNOWN INDICATION
     Dosage: UNK
     Route: 048
     Dates: start: 2007
  6. SIMVASTATIN [Concomitant]
     Indication: PRODUCT USED FOR UNKNOWN INDICATION
     Dosage: UNK
     Route: 048
     Dates: start: 2004
  7. LISINOPRIL [Concomitant]
     Indication: PRODUCT USED FOR UNKNOWN INDICATION
     Dosage: UNK
     Route: 048
     Dates: start: 2002

REACTIONS (1)
  - Gastroenteritis [Recovered/Resolved]
